FAERS Safety Report 6444521-9 (Version None)
Quarter: 2009Q4

REPORT INFORMATION
  Report Type: 
  Country: None (occurrence: None)
  Receive Date: 20091118
  Receipt Date: 20091109
  Transmission Date: 20100525
  Serious: Yes (Hospitalization)
  Sender: FDA-Public Use
  Company Number: US-NOVOPROD-300515

PATIENT
  Sex: Female
  Weight: 73.016 kg

DRUGS (1)
  1. NOVOLOG MIX 70/30 [Suspect]
     Indication: TYPE 1 DIABETES MELLITUS
     Dosage: UNK
     Route: 058
     Dates: end: 20090921

REACTIONS (4)
  - BLOOD GLUCOSE FLUCTUATION [None]
  - CARDIAC FAILURE CONGESTIVE [None]
  - DECREASED APPETITE [None]
  - MALAISE [None]
